FAERS Safety Report 6175713-4 (Version None)
Quarter: 2009Q2

REPORT INFORMATION
  Report Type: 
  Country: None (occurrence: None)
  Receive Date: 20090501
  Receipt Date: 20090428
  Transmission Date: 20091009
  Serious: Yes (Hospitalization, Other)
  Sender: FDA-Public Use
  Company Number: FR-BRISTOL-MYERS SQUIBB COMPANY-14533673

PATIENT
  Age: 44 Year
  Sex: Male
  Weight: 75 kg

DRUGS (2)
  1. BARACLUDE [Suspect]
     Indication: HEPATITIS B
     Dosage: INTERRUPTED IN END OF NOV08,REINTRODUCED ON 12JAN09.
     Route: 048
     Dates: start: 20060101
  2. VIREAD [Concomitant]
     Indication: HEPATITIS B
     Route: 048
     Dates: start: 20090102

REACTIONS (2)
  - DRUG TOLERANCE [None]
  - HEPATITIS B [None]
